FAERS Safety Report 6694893-5 (Version None)
Quarter: 2010Q2

REPORT INFORMATION
  Report Type: 
  Country: None (occurrence: None)
  Receive Date: 20100423
  Receipt Date: 20100413
  Transmission Date: 20101027
  Serious: Yes (Other)
  Sender: FDA-Public Use
  Company Number: GB-JNJFOC-20100404276

PATIENT
  Sex: Female

DRUGS (4)
  1. TOPIRAMATE [Suspect]
     Indication: EPILEPSY
     Route: 048
  2. LEVETIRACETAM [Suspect]
     Indication: EPILEPSY
     Route: 065
  3. LAMOTRIGINE [Suspect]
     Indication: EPILEPSY
     Route: 065
  4. ZONISAMIDE [Suspect]
     Indication: EPILEPSY
     Route: 065

REACTIONS (2)
  - ABORTION SPONTANEOUS [None]
  - DRUG EXPOSURE DURING PREGNANCY [None]
